FAERS Safety Report 4610668-2 (Version None)
Quarter: 2005Q2

REPORT INFORMATION
  Report Type: 
  Country: None (occurrence: None)
  Receive Date: 20050301
  Receipt Date: 20041123
  Transmission Date: 20051028
  Serious: No
  Sender: FDA-Public Use
  Company Number: WAES 0412USA00612

PATIENT

DRUGS (3)
  1. ZETIA [Suspect]
     Dosage: PO
     Route: 048
  2. DIOVAN [Concomitant]
  3. ZOCOR [Concomitant]

REACTIONS (1)
  - MYALGIA [None]
